FAERS Safety Report 7467572-4 (Version None)
Quarter: 2011Q2

REPORT INFORMATION
  Report Type: 
  Country: None (occurrence: None)
  Receive Date: 20110509
  Receipt Date: 20110505
  Transmission Date: 20111010
  Serious: Yes (Hospitalization)
  Sender: FDA-Public Use
  Company Number: US-GILEAD-2011-0037761

PATIENT
  Age: 24 Year
  Sex: Male
  Weight: 68.2 kg

DRUGS (3)
  1. RITONAVIR [Suspect]
     Indication: HIV INFECTION
     Dates: start: 20100706
  2. ATAZANAVIR [Suspect]
     Indication: HIV INFECTION
     Dates: start: 20100706
  3. TRUVADA [Suspect]
     Indication: HIV INFECTION
     Dates: start: 20100706

REACTIONS (1)
  - POLYNEUROPATHY [None]
